FAERS Safety Report 21728687 (Version 1)
Quarter: 2022Q4

REPORT INFORMATION
  Report Type: Spontaneous
  Country: US (occurrence: US)
  Receive Date: 20221214
  Receipt Date: 20221214
  Transmission Date: 20230112
  Serious: No
  Sender: FDA-Public Use
  Company Number: US-009507513-2212USA002575

PATIENT
  Sex: Male

DRUGS (2)
  1. INVANZ [Suspect]
     Active Substance: ERTAPENEM SODIUM
     Indication: Enterobacter infection
     Dosage: 1 GRAM, DAILY
     Route: 042
  2. KEYTRUDA [Concomitant]
     Active Substance: PEMBROLIZUMAB
     Indication: Metastatic carcinoma of the bladder

REACTIONS (1)
  - Product use in unapproved indication [Unknown]
